FAERS Safety Report 8795117 (Version 2)
Quarter: 2015Q2

REPORT INFORMATION
  Report Type: Report from Study
  Country: US (occurrence: US)
  Receive Date: 20120917
  Receipt Date: 20150623
  Transmission Date: 20150821
  Serious: Yes (Death)
  Sender: FDA-Public Use
  Company Number: US-ROCHE-1129506

PATIENT
  Age: 48 Year
  Sex: Male

DRUGS (14)
  1. ARANESP [Concomitant]
     Active Substance: DARBEPOETIN ALFA
     Route: 065
  2. ALOXI [Concomitant]
     Active Substance: PALONOSETRON HYDROCHLORIDE
     Route: 065
  3. TAGAMET [Concomitant]
     Active Substance: CIMETIDINE
     Route: 042
  4. NAVELBINE [Concomitant]
     Active Substance: VINORELBINE TARTRATE
     Route: 042
  5. CAMPTOSAR [Concomitant]
     Active Substance: IRINOTECAN HYDROCHLORIDE
  6. BENADRYL [Concomitant]
     Active Substance: DIPHENHYDRAMINE HYDROCHLORIDE
     Route: 065
  7. TARCEVA [Concomitant]
     Active Substance: ERLOTINIB HYDROCHLORIDE
     Route: 065
  8. AVASTIN [Suspect]
     Active Substance: BEVACIZUMAB
     Route: 042
  9. ATROPINE [Concomitant]
     Active Substance: ATROPINE
     Route: 042
  10. AVASTIN [Suspect]
     Active Substance: BEVACIZUMAB
     Indication: BRAIN NEOPLASM MALIGNANT
     Route: 042
     Dates: start: 20070419
  11. BENADRYL [Concomitant]
     Active Substance: DIPHENHYDRAMINE HYDROCHLORIDE
     Route: 065
  12. IRINOTECAN [Concomitant]
     Active Substance: IRINOTECAN
  13. DECADRON [Concomitant]
     Active Substance: DEXAMETHASONE
     Route: 065
  14. VP-16 [Concomitant]
     Active Substance: ETOPOSIDE
     Route: 065

REACTIONS (5)
  - Off label use [Unknown]
  - Chest discomfort [Unknown]
  - Chills [Unknown]
  - Death [Fatal]
  - Cough [Unknown]

NARRATIVE: CASE EVENT DATE: 20101126
